FAERS Safety Report 4638197-0 (Version None)
Quarter: 2005Q2

REPORT INFORMATION
  Report Type: 
  Country: None (occurrence: None)
  Receive Date: 20050415
  Receipt Date: 20050329
  Transmission Date: 20051028
  Serious: Yes (Hospitalization)
  Sender: FDA-Public Use
  Company Number: 2005000620

PATIENT
  Age: 81 Year
  Sex: Male

DRUGS (17)
  1. TARCEVA [Suspect]
     Indication: NON-SMALL CELL LUNG CANCER
     Dosage: 150 MG (QD), ORAL
     Route: 048
  2. RADIOTHERAPY [Concomitant]
  3. DEXAMETHASONE [Concomitant]
  4. PARACETAMOL [Concomitant]
  5. ATENOLOL [Concomitant]
  6. BUMETANIDE [Concomitant]
  7. CITALOPRAM HYDROBROMIDE [Concomitant]
  8. FENTANYL [Concomitant]
  9. FOLIC ACID [Concomitant]
  10. ISOSORBIDE [Concomitant]
  11. SALBUTAMOL [Concomitant]
  12. LOSARTAN POTASSIUM [Concomitant]
  13. NIFEDIPINE [Concomitant]
  14. PANTOPRAZOLE SODIUM [Concomitant]
  15. POTASSIUM CHLORIDE [Concomitant]
  16. IBUPROFEN [Concomitant]
  17. OXYCOCET [Concomitant]

REACTIONS (2)
  - EPISTAXIS [None]
  - HAEMOLYTIC ANAEMIA [None]
